FAERS Safety Report 13715791 (Version 4)
Quarter: 2018Q1

REPORT INFORMATION
  Report Type: Report from Study
  Country: HK (occurrence: HK)
  Receive Date: 20170705
  Receipt Date: 20180319
  Transmission Date: 20180508
  Serious: Yes (Other)
  Sender: FDA-Public Use
  Company Number: HK-ROCHE-1955726

PATIENT
  Age: 6 Year
  Sex: Male

DRUGS (11)
  1. ETOPOSIDE. [Suspect]
     Active Substance: ETOPOSIDE
     Indication: DIFFUSE LARGE B-CELL LYMPHOMA
     Dosage: WITH A CUMULATIVE DOSE SINCE THE FIRST ADMINISTRATION OF 720MG
     Route: 042
     Dates: start: 20170615, end: 20170618
  2. METHOTREXATE. [Suspect]
     Active Substance: METHOTREXATE
     Indication: DIFFUSE LARGE B-CELL LYMPHOMA
     Dosage: WITH A CUMULATIVE DOSE SINCE THE FIRST ADMINISTRATION OF 150MG
     Route: 042
     Dates: start: 20170614, end: 20170614
  3. APREPITANT. [Concomitant]
     Active Substance: APREPITANT
     Indication: VOMITING
     Route: 048
     Dates: start: 20170614, end: 20170616
  4. HYDROCORTISONE. [Suspect]
     Active Substance: HYDROCORTISONE
     Indication: DIFFUSE LARGE B-CELL LYMPHOMA
     Dosage: WITH A CUMULATIVE DOSE SINCE THE FIRST ADMINISTRATION OF 150MG
     Route: 042
     Dates: start: 20170614, end: 20170614
  5. GABAPENTINE [Concomitant]
     Active Substance: GABAPENTIN
     Indication: NEURALGIA
     Dosage: 100MG/100MG/300MG TDS
     Route: 048
     Dates: start: 20170615
  6. COTRIMOXAZOLE [Concomitant]
     Active Substance: SULFAMETHOXAZOLE\TRIMETHOPRIM
     Indication: PROPHYLAXIS
     Dosage: 480MG/240 MG
     Route: 065
     Dates: start: 20170612
  7. CYTARABINE. [Suspect]
     Active Substance: CYTARABINE
     Indication: DIFFUSE LARGE B-CELL LYMPHOMA
     Dosage: WITH A CUMULATIVE DOSE SINCE THE FIRST ADMINISTRATION OF 10980MG
     Route: 042
     Dates: start: 20170614, end: 20170618
  8. RITUXIMAB. [Suspect]
     Active Substance: RITUXIMAB
     Indication: DIFFUSE LARGE B-CELL LYMPHOMA
     Dosage: WITH A CUMULATIVE DOSE SINCE THE FIRST ADMINISTRATION OF 1430MG
     Route: 042
     Dates: start: 20170614, end: 20170614
  9. AMITRIPTYLINE [Concomitant]
     Active Substance: AMITRIPTYLINE
     Indication: NEURALGIA
     Route: 048
     Dates: start: 20170531
  10. DEXAMETHASONE. [Concomitant]
     Active Substance: DEXAMETHASONE
     Indication: VOMITING
     Route: 048
     Dates: start: 20170614, end: 20170617
  11. GRANISETRON [Concomitant]
     Active Substance: GRANISETRON
     Indication: VOMITING
     Route: 042
     Dates: start: 20170614, end: 20170619

REACTIONS (1)
  - Myelopathy [Recovering/Resolving]

NARRATIVE: CASE EVENT DATE: 20170616
